FAERS Safety Report 6742801-0 (Version None)
Quarter: 2010Q2

REPORT INFORMATION
  Report Type: 
  Country: None (occurrence: None)
  Receive Date: 20100525
  Receipt Date: 20100512
  Transmission Date: 20101027
  Serious: Yes (Other)
  Sender: FDA-Public Use
  Company Number: 7004799

PATIENT
  Age: 60 Year
  Sex: Male
  Weight: 103 kg

DRUGS (8)
  1. REBIF [Suspect]
     Indication: MULTIPLE SCLEROSIS
     Dosage: 44 MCG, 3 IN 1 WK, SUBCUTANEOUS
     Route: 058
     Dates: start: 20091009, end: 20100507
  2. HYDROCODONE (HYDROCODONE) [Concomitant]
  3. OXYBUTYNIN CHLORIDE [Concomitant]
  4. BACLOFEN [Concomitant]
  5. PAROXETINE HCL [Concomitant]
  6. PRAVASTATIN [Concomitant]
  7. BABY ASPIRIN (COLSPRIN) [Concomitant]
  8. IBUPROFEN [Concomitant]

REACTIONS (5)
  - ABASIA [None]
  - INJECTION SITE ERYTHEMA [None]
  - MUSCULAR WEAKNESS [None]
  - URTICARIA [None]
  - WHEEZING [None]
